FAERS Safety Report 12166091 (Version 4)
Quarter: 2017Q3

REPORT INFORMATION
  Report Type: Spontaneous
  Country: FR (occurrence: FR)
  Receive Date: 20160309
  Receipt Date: 20170912
  Transmission Date: 20171127
  Serious: Yes (Disabling, Congenital Anomaly, Other)
  Sender: FDA-Public Use
  Company Number: FR-ABBVIE-15P-056-1486687-00

PATIENT
  Sex: Female

DRUGS (1)
  1. DEPAKINE CHRONO [Suspect]
     Active Substance: VALPROATE SODIUM
     Indication: MATERNAL EXPOSURE TIMING UNSPECIFIED
     Route: 064

REACTIONS (21)
  - Foetal exposure during pregnancy [Unknown]
  - Fatigue [Unknown]
  - Ill-defined disorder [Unknown]
  - Congenital anomaly [Unknown]
  - Hypermobility syndrome [Unknown]
  - Congenital foot malformation [Unknown]
  - Anal fissure [Unknown]
  - Anal incontinence [Not Recovered/Not Resolved]
  - Disturbance in attention [Unknown]
  - Dysmorphism [Unknown]
  - Ear infection [Unknown]
  - Asthma [Unknown]
  - Dysgraphia [Not Recovered/Not Resolved]
  - Educational problem [Unknown]
  - Foetal anticonvulsant syndrome [Unknown]
  - Spina bifida occulta [Not Recovered/Not Resolved]
  - Visual impairment [Unknown]
  - Scoliosis [Unknown]
  - Abdominal discomfort [Unknown]
  - Urinary incontinence [Not Recovered/Not Resolved]
  - Gastrointestinal disorder [Unknown]

NARRATIVE: CASE EVENT DATE: 2009
